FAERS Safety Report 9521639 (Version 1)
Quarter: 2013Q1

REPORT INFORMATION
  Report Type: Spontaneous
  Country: US (occurrence: None)
  Receive Date: 20130305
  Receipt Date: 20130305
  Transmission Date: 20140127
  Serious: Yes (Hospitalization)
  Sender: FDA-Public Use
  Company Number: 163-21880-12030077

PATIENT
  Age: 77 Year
  Sex: Male
  Weight: 98.88 kg

DRUGS (12)
  1. REVLIMID [Suspect]
     Indication: PLASMA CELL MYELOMA
     Dosage: QOD X 21 DAYS
     Route: 048
     Dates: start: 2009, end: 20120223
  2. CALCIUM (CALCIUM) (UNKNOWN) [Concomitant]
  3. COLACE (DOCUSATE SODIUM) (UNKNOWN) [Concomitant]
  4. DIGOXIN (DIGOXIN) (UNKNOWN) (DIGOXIN) [Concomitant]
  5. L-CARNITIN (LEVOCARNITINE HYDROCHLORIDE) (UNKNOWN) [Concomitant]
  6. MULTIVITAMIN (MULTIVITAMINS) (UNKNOWN) [Concomitant]
  7. POTASSIUM (POTASSIUM) (UNKNOWN) [Concomitant]
  8. PREDNISONE (PREDNISONE) (UNKNOWN) [Concomitant]
  9. PREVACID (LANSOPRAZOLE) (UNKNOWN) [Concomitant]
  10. SYNTHROID (LEVOTHYROXINE SODIUM) (UNKNOWN) [Concomitant]
  11. VALCYCLOVIR (VALCICLOVIR) (UNKNOWN) [Concomitant]
  12. COUMADIN (WARFARIN SODIUM) (UNKNOWN) [Concomitant]

REACTIONS (2)
  - Pneumonia [None]
  - Rash [None]
